FAERS Safety Report 21319083 (Version 1)
Quarter: 2022Q3

REPORT INFORMATION
  Report Type: Spontaneous
  Country: US (occurrence: US)
  Receive Date: 20220911
  Receipt Date: 20220911
  Transmission Date: 20221027
  Serious: No
  Sender: FDA-Public Use
  Company Number: US-SA-SAC20220905000334

PATIENT

DRUGS (1)
  1. DUPIXENT [Suspect]
     Active Substance: DUPILUMAB
     Dosage: UNK
     Route: 065

REACTIONS (5)
  - Skin haemorrhage [Unknown]
  - Injury associated with device [Unknown]
  - Eye inflammation [Unknown]
  - Product dose omission issue [Unknown]
  - Device delivery system issue [Unknown]
